FAERS Safety Report 15150496 (Version 3)
Quarter: 2018Q3

REPORT INFORMATION
  Report Type: Spontaneous
  Country: BR (occurrence: BR)
  Receive Date: 20180716
  Receipt Date: 20180824
  Transmission Date: 20181010
  Serious: Yes (Other)
  Sender: FDA-Public Use
  Company Number: BR-PFIZER INC-2018268204

PATIENT
  Sex: Male

DRUGS (1)
  1. CHAMPIX [Suspect]
     Active Substance: VARENICLINE TARTRATE
     Indication: SMOKING CESSATION THERAPY
     Dosage: 1 MG, DAILY
     Dates: start: 20180401

REACTIONS (14)
  - Disturbance in attention [Recovered/Resolved]
  - Dizziness [Recovered/Resolved]
  - Withdrawal syndrome [Recovered/Resolved]
  - Pallor [Not Recovered/Not Resolved]
  - Feeling drunk [Recovered/Resolved]
  - Malaise [Recovered/Resolved]
  - Anxiety [Recovered/Resolved]
  - Impaired work ability [Recovered/Resolved]
  - Syncope [Recovered/Resolved]
  - Feeling of despair [Recovered/Resolved]
  - Fear [Unknown]
  - Panic disorder [Recovered/Resolved]
  - Drug dependence [Not Recovered/Not Resolved]
  - Tremor [Recovered/Resolved]

NARRATIVE: CASE EVENT DATE: 20180628
